FAERS Safety Report 10391139 (Version 2)
Quarter: 2014Q3

REPORT INFORMATION
  Report Type: Spontaneous
  Country: US (occurrence: US)
  Receive Date: 20140818
  Receipt Date: 20140904
  Transmission Date: 20150326
  Serious: Yes (Other)
  Sender: FDA-Public Use
  Company Number: US-BAYER-2014-120127

PATIENT
  Age: 69 Year
  Sex: Female
  Weight: 53.97 kg

DRUGS (2)
  1. LACTULOSE. [Concomitant]
     Active Substance: LACTULOSE
     Indication: ENCEPHALOPATHY
  2. NEXAVAR [Suspect]
     Active Substance: SORAFENIB
     Indication: HEPATOCELLULAR CARCINOMA
     Dosage: 400 MG, BID
     Route: 048
     Dates: start: 201203, end: 201404

REACTIONS (4)
  - Skin infection [Recovered/Resolved]
  - Oedema peripheral [None]
  - Cellulitis [Recovered/Resolved]
  - Skin abrasion [None]

NARRATIVE: CASE EVENT DATE: 20140420
